FAERS Safety Report 8874217 (Version 3)
Quarter: 2013Q1

REPORT INFORMATION
  Report Type: Report from Study
  Country: NL (occurrence: NL)
  Receive Date: 20121030
  Receipt Date: 20130201
  Transmission Date: 20140127
  Serious: Yes (Hospitalization)
  Sender: FDA-Public Use
  Company Number: NL-CELGENEUS-114-21880-12102053

PATIENT
  Age: 67 Year
  Sex: Male
  Weight: 107 kg

DRUGS (4)
  1. REVLIMID [Suspect]
     Indication: PLASMA CELL MYELOMA
     Route: 048
     Dates: start: 20121003, end: 20121010
  2. REVLIMID [Suspect]
     Route: 048
  3. MELPHALAN [Suspect]
     Indication: PLASMA CELL MYELOMA
     Route: 048
     Dates: start: 20121003, end: 20121006
  4. PREDNISONE [Suspect]
     Indication: PLASMA CELL MYELOMA
     Route: 048
     Dates: start: 20121003, end: 20121006

REACTIONS (1)
  - Jaundice [Recovered/Resolved]
